FAERS Safety Report 11515032 (Version 6)
Quarter: 2016Q1

REPORT INFORMATION
  Report Type: Report from Study
  Country: US (occurrence: US)
  Receive Date: 20150916
  Receipt Date: 20160125
  Transmission Date: 20160525
  Serious: Yes (Hospitalization, Other)
  Sender: FDA-Public Use
  Company Number: US-BAXTER-2015BAX049664

PATIENT
  Age: 39 Year
  Sex: Female
  Weight: 70.9 kg

DRUGS (32)
  1. OBINUTUZUMAB [Suspect]
     Active Substance: OBINUTUZUMAB
     Dosage: STARTED AT 15:15, ADMINISTERED ONCE WEEKLY FOR 3 WEEKS THEN ONCE EVERY 3 WEEKS FOR 7 DOSES, LAST DOS
     Route: 042
     Dates: start: 20150828, end: 20150828
  2. PREDNISONE. [Suspect]
     Active Substance: PREDNISONE
     Dosage: 100 UNIT NOT REPORTED
     Route: 048
     Dates: start: 20150828
  3. CYCLOPHOSPHAMIDE FOR INJECTION, USP [Suspect]
     Active Substance: CYCLOPHOSPHAMIDE
     Indication: DIFFUSE LARGE B-CELL LYMPHOMA
     Dosage: 1400 (UNIT NOT REPORTED)
     Route: 042
     Dates: start: 20150828
  4. VINCRISTINE [Suspect]
     Active Substance: VINCRISTINE
     Indication: DIFFUSE LARGE B-CELL LYMPHOMA
     Dosage: 2 (UNIT NOT REPORTED)
     Route: 042
     Dates: start: 20150828
  5. PREDNISONE. [Suspect]
     Active Substance: PREDNISONE
     Dosage: 100 (UNIT NOT REPORTED), MOST RECENT DOSE
     Route: 048
     Dates: start: 20150831
  6. SENNA [Concomitant]
     Active Substance: SENNA LEAF\SENNOSIDES\SENNOSIDES A AND B
     Indication: CONSTIPATION
     Route: 065
     Dates: start: 20150827
  7. PANTOPRAZOLE [Concomitant]
     Active Substance: PANTOPRAZOLE SODIUM
     Indication: GASTROOESOPHAGEAL REFLUX DISEASE
     Route: 065
     Dates: start: 20150820
  8. SULFAMETHOXAZOLE/TRIMETHOPRIM (SMZ-TMP) [Concomitant]
     Route: 065
     Dates: start: 20150828, end: 20150828
  9. PEGFILGRASTIM [Concomitant]
     Active Substance: PEGFILGRASTIM
     Indication: FEBRILE NEUTROPENIA
     Route: 065
     Dates: start: 20150831, end: 20150831
  10. PALONOSETRON [Concomitant]
     Active Substance: PALONOSETRON
     Indication: PROPHYLAXIS OF NAUSEA AND VOMITING
     Route: 065
     Dates: start: 20150828, end: 20150828
  11. GDC-0199 (BCL-2 SELECTIVE INHIBITOR) [Suspect]
     Active Substance: VENETOCLAX
     Indication: DIFFUSE LARGE B-CELL LYMPHOMA
     Dosage: ONCE DAILY ON DAY 4-10 OF THE CYCLE1, LAST DOSE PRIOR TO AE
     Route: 048
     Dates: start: 20150831
  12. DOXORUBICIN [Suspect]
     Active Substance: DOXORUBICIN
     Indication: DIFFUSE LARGE B-CELL LYMPHOMA
     Dosage: 90 (UNIT NOT REPORTED)
     Route: 042
     Dates: start: 20150828
  13. DOCUSATE SODIUM. [Concomitant]
     Active Substance: DOCUSATE SODIUM
     Route: 065
     Dates: start: 20150828
  14. PROCHLORPERAZINE. [Concomitant]
     Active Substance: PROCHLORPERAZINE
     Indication: NAUSEA
     Route: 065
     Dates: start: 20150827
  15. PROCHLORPERAZINE. [Concomitant]
     Active Substance: PROCHLORPERAZINE
     Route: 065
     Dates: start: 20150831, end: 20150831
  16. ACETAMINOPHEN. [Concomitant]
     Active Substance: ACETAMINOPHEN
     Indication: PREMEDICATION
     Route: 065
     Dates: start: 20150828, end: 20150828
  17. NORMAL SALINE [Concomitant]
     Active Substance: SODIUM CHLORIDE
     Indication: PRODUCT USED FOR UNKNOWN INDICATION
     Route: 065
     Dates: start: 20150828, end: 20150828
  18. ACICLOVIR [Concomitant]
     Active Substance: ACYCLOVIR
     Indication: VIRAL INFECTION
     Route: 065
     Dates: start: 20150828
  19. TRAMADOL. [Concomitant]
     Active Substance: TRAMADOL
     Indication: PAIN
     Route: 065
     Dates: start: 20150820, end: 20150918
  20. FOSAPREPITANT [Concomitant]
     Active Substance: FOSAPREPITANT
     Indication: PROPHYLAXIS OF NAUSEA AND VOMITING
     Route: 065
     Dates: start: 20150828, end: 20150828
  21. LASIX [Concomitant]
     Active Substance: FUROSEMIDE
     Indication: OEDEMA
     Route: 065
     Dates: start: 20150901
  22. ALLOPURINOL. [Concomitant]
     Active Substance: ALLOPURINOL
     Indication: TUMOUR LYSIS SYNDROME
     Route: 065
     Dates: start: 20150828
  23. SULFAMETHOXAZOLE/TRIMETHOPRIM (SMZ-TMP) [Concomitant]
     Indication: INFECTION
     Dosage: 800/160 MG
     Route: 065
     Dates: start: 20150828, end: 20150828
  24. VENETOCLAX [Concomitant]
     Active Substance: VENETOCLAX
     Indication: TUMOUR LYSIS SYNDROME
     Route: 065
     Dates: start: 20150901
  25. OBINUTUZUMAB [Suspect]
     Active Substance: OBINUTUZUMAB
     Indication: DIFFUSE LARGE B-CELL LYMPHOMA
     Dosage: STARTED AT 10:45, ADMINISTERED ONCE WEEKLY FOR 3 WEEKS THEN ONCE EVERY 3 WEEKS FOR 7 DOSES, LAST DOS
     Route: 042
     Dates: start: 20150828, end: 20150828
  26. ONDANSETRON [Concomitant]
     Active Substance: ONDANSETRON
     Indication: NAUSEA
     Route: 065
     Dates: start: 20150820, end: 20150901
  27. DIPHENHYDRAMINE. [Concomitant]
     Active Substance: DIPHENHYDRAMINE
     Indication: PRODUCT USED FOR UNKNOWN INDICATION
     Route: 065
  28. OBINUTUZUMAB [Suspect]
     Active Substance: OBINUTUZUMAB
     Dosage: ADMINISTERED ONCE WEEKLY FOR 3 WEEKS THEN ONCE EVERY 3 WEEKS FOR 7 DOSES, LAST DOSE PRIOR TO AE
     Route: 042
     Dates: start: 20150828, end: 20150828
  29. OBINUTUZUMAB [Suspect]
     Active Substance: OBINUTUZUMAB
     Dosage: ADMINISTERED ONCE WEEKLY FOR 3 WEEKS THEN ONCE EVERY 3 WEEKS FOR 7 DOSES, LAST DOSE PRIOR TO AE
     Route: 042
     Dates: start: 20150828, end: 20150828
  30. PREDNISONE. [Suspect]
     Active Substance: PREDNISONE
     Indication: DIFFUSE LARGE B-CELL LYMPHOMA
     Dosage: 100 UNIT NOT REPORTED
     Route: 048
     Dates: start: 20150820, end: 20150827
  31. DOCUSATE SODIUM. [Concomitant]
     Active Substance: DOCUSATE SODIUM
     Indication: CONSTIPATION
     Route: 065
     Dates: start: 20150820
  32. KAYEXALATE [Concomitant]
     Active Substance: SODIUM POLYSTYRENE SULFONATE
     Indication: TUMOUR LYSIS SYNDROME
     Route: 065
     Dates: start: 20150901

REACTIONS (2)
  - Infusion related reaction [Recovered/Resolved]
  - Hyperkalaemia [Recovered/Resolved]

NARRATIVE: CASE EVENT DATE: 20150828
